FAERS Safety Report 5057829-9 (Version None)
Quarter: 2006Q3

REPORT INFORMATION
  Report Type: 
  Country: None (occurrence: None)
  Receive Date: 20060721
  Receipt Date: 20060308
  Transmission Date: 20061208
  Serious: No
  Sender: FDA-Public Use
  Company Number: US-GLAXOSMITHKLINE-A0596748A

PATIENT
  Age: 58 Year
  Sex: Male
  Weight: 90.9 kg

DRUGS (8)
  1. AVANDIA [Suspect]
     Dosage: 4MG PER DAY
     Route: 048
     Dates: start: 20040601
  2. ZYRTEC [Concomitant]
     Dates: start: 20050801
  3. FLONASE [Concomitant]
     Dates: start: 20050801
  4. METFORMIN [Concomitant]
     Dates: start: 20040101
  5. GLYBURIDE [Concomitant]
     Dates: start: 20050201
  6. TRICOR [Concomitant]
     Dates: start: 20040601
  7. LIPITOR [Concomitant]
     Dates: start: 20050201
  8. LISINOPRIL [Concomitant]
     Dates: start: 20031201

REACTIONS (1)
  - RHINORRHOEA [None]
